FAERS Safety Report 7646880-8 (Version None)
Quarter: 2011Q3

REPORT INFORMATION
  Report Type: 
  Country: None (occurrence: None)
  Receive Date: 20110801
  Receipt Date: 20110721
  Transmission Date: 20111222
  Serious: Yes (Hospitalization)
  Sender: FDA-Public Use
  Company Number: JP-SANOFI-AVENTIS-2011SA046689

PATIENT
  Age: 75 Year
  Sex: Male

DRUGS (6)
  1. SPIRONOLACTONE [Concomitant]
  2. CLARITHROMYCIN [Concomitant]
  3. LANSOPRAZOLE [Concomitant]
  4. ZOLPIDEM [Suspect]
     Route: 048
     Dates: start: 20110713
  5. SPIRIVA [Concomitant]
  6. FUROSEMIDE [Concomitant]

REACTIONS (6)
  - HYPERHIDROSIS [None]
  - RESPIRATORY DEPRESSION [None]
  - PYREXIA [None]
  - SALIVARY HYPERSECRETION [None]
  - WHITE BLOOD CELL COUNT INCREASED [None]
  - CARBON DIOXIDE INCREASED [None]
